FAERS Safety Report 17683261 (Version 1)
Quarter: 2020Q2

REPORT INFORMATION
  Report Type: Report from Study
  Country: ES (occurrence: ES)
  Receive Date: 20200420
  Receipt Date: 20200420
  Transmission Date: 20200714
  Serious: Yes (Hospitalization)
  Sender: FDA-Public Use
  Company Number: ES-TEVA-2020-ES-1224369

PATIENT
  Age: 68 Year
  Sex: Female

DRUGS (4)
  1. LORMETAZEPAM (88A) [Concomitant]
     Active Substance: LORMETAZEPAM
     Dosage: 2 MG 1 DAYS
     Route: 048
     Dates: start: 20140326
  2. DEXKETOPROFENO (7312A) [Interacting]
     Active Substance: DEXKETOPROFEN
     Indication: BACK PAIN
     Route: 048
     Dates: start: 20170830, end: 20170926
  3. SERTRALINA (2537A) [Interacting]
     Active Substance: SERTRALINE HYDROCHLORIDE
     Dosage: 50 MG 1 DAYS
     Route: 048
     Dates: start: 20160316
  4. IBUPROFENO (1769A) [Suspect]
     Active Substance: IBUPROFEN
     Indication: BACK PAIN
     Route: 048
     Dates: start: 20170830, end: 20170926

REACTIONS (2)
  - Drug interaction [Unknown]
  - Upper gastrointestinal haemorrhage [Recovered/Resolved]

NARRATIVE: CASE EVENT DATE: 201709
